FAERS Safety Report 23633552 (Version 1)
Quarter: 2024Q1

REPORT INFORMATION
  Report Type: Spontaneous
  Country: US (occurrence: US)
  Receive Date: 20240314
  Receipt Date: 20240314
  Transmission Date: 20240410
  Serious: No
  Sender: FDA-Public Use
  Company Number: US-PFIZER INC-PV202300157608

PATIENT
  Age: 75 Year
  Sex: Female

DRUGS (2)
  1. INLYTA [Suspect]
     Active Substance: AXITINIB
     Dosage: 3 MG PO (ORAL) BID (2X/DAY)
     Route: 048
  2. INLYTA [Suspect]
     Active Substance: AXITINIB
     Dosage: TAKE 4MG

REACTIONS (1)
  - Hypoacusis [Unknown]
